FAERS Safety Report 25776316 (Version 1)
Quarter: 2025Q3

REPORT INFORMATION
  Report Type: Spontaneous
  Country: US (occurrence: US)
  Receive Date: 20250909
  Receipt Date: 20250909
  Transmission Date: 20251021
  Serious: No
  Sender: DOMPE FARMACEUTICI
  Company Number: US-FARMAPROD-202502-0547

PATIENT
  Sex: Female

DRUGS (14)
  1. OXERVATE [Suspect]
     Active Substance: CENEGERMIN-BKBJ
     Indication: Neurotrophic keratopathy
     Route: 047
     Dates: start: 20190410, end: 20190605
  2. OXERVATE [Suspect]
     Active Substance: CENEGERMIN-BKBJ
     Route: 047
     Dates: start: 20241023, end: 20241218
  3. METHOTREXATE [Concomitant]
     Active Substance: METHOTREXATE
  4. POTASSIUM CHLORIDE [Concomitant]
     Active Substance: POTASSIUM CHLORIDE
  5. METOPROLOL SUCCINATE [Concomitant]
     Active Substance: METOPROLOL SUCCINATE
  6. FERROUS GLUCONATE [Concomitant]
     Active Substance: FERROUS GLUCONATE
  7. OMEPRAZOLE [Concomitant]
     Active Substance: OMEPRAZOLE
  8. DULOXETINE HYDROCHLORIDE [Concomitant]
     Active Substance: DULOXETINE HYDROCHLORIDE
  9. ATORVASTATIN CALCIUM [Concomitant]
     Active Substance: ATORVASTATIN CALCIUM
  10. ROPINIROLE [Concomitant]
     Active Substance: ROPINIROLE
  11. GABAPENTIN [Concomitant]
     Active Substance: GABAPENTIN
  12. ASPIRIN [Concomitant]
     Active Substance: ASPIRIN
  13. CHONDROITIN SULFATE (BOVINE)\GLUCOSAMINE HYDROCHLORIDE [Concomitant]
     Active Substance: CHONDROITIN SULFATE (BOVINE)\GLUCOSAMINE HYDROCHLORIDE
  14. REFRESH OPTIVE SENSITIVE [Concomitant]
     Active Substance: CARBOXYMETHYLCELLULOSE SODIUM\GLYCERIN

REACTIONS (1)
  - Visual impairment [Unknown]
